FAERS Safety Report 10647344 (Version 3)
Quarter: 2014Q4

REPORT INFORMATION
  Report Type: Report from Study
  Country: MX (occurrence: MX)
  Receive Date: 20141211
  Receipt Date: 20141217
  Transmission Date: 20150529
  Serious: Yes (Other)
  Sender: FDA-Public Use
  Company Number: PHHY2014MX043186

PATIENT
  Age: 80 Year
  Sex: Female

DRUGS (9)
  1. OMEGA 3 [Concomitant]
     Active Substance: OMEGA-3 FATTY ACIDS
     Indication: DIABETES MELLITUS
     Dosage: 2 OT, QD
     Route: 065
     Dates: start: 1994
  2. ACLASTA [Suspect]
     Active Substance: ZOLEDRONIC ACID
     Indication: OSTEOPENIA
     Dosage: 5 MG,  1 ANNUAL APPLICATION
     Route: 042
     Dates: start: 201103
  3. ACLASTA [Suspect]
     Active Substance: ZOLEDRONIC ACID
     Dosage: 5 MG,  1 ANNUAL APPLICATION
     Route: 042
     Dates: start: 201209
  4. ACLASTA [Suspect]
     Active Substance: ZOLEDRONIC ACID
     Dosage: 5 MG,  1 ANNUAL APPLICATION
     Route: 042
     Dates: start: 201303
  5. AMLODIPINE [Concomitant]
     Active Substance: AMLODIPINE BESYLATE
     Indication: HYPERTENSION
     Dosage: 2 OT, QD
     Route: 065
     Dates: start: 2004
  6. ACLASTA [Suspect]
     Active Substance: ZOLEDRONIC ACID
     Indication: OSTEOPOROSIS
     Dosage: 5 MG,  1 ANNUAL APPLICATION
     Route: 042
     Dates: start: 201203
  7. ACLASTA [Suspect]
     Active Substance: ZOLEDRONIC ACID
     Dosage: 5 MG,  1 ANNUAL APPLICATION
     Route: 042
     Dates: start: 20121201
  8. GLINORBORAL [Concomitant]
     Indication: DIABETES MELLITUS
     Dosage: 1 OT, QD
     Route: 065
     Dates: start: 2004
  9. ACLASTA [Suspect]
     Active Substance: ZOLEDRONIC ACID
     Dosage: 5 MG,  1 ANNUAL APPLICATION
     Route: 042
     Dates: start: 201404

REACTIONS (4)
  - Hernia [Recovered/Resolved]
  - Product use issue [Unknown]
  - Fall [Recovered/Resolved]
  - Inappropriate schedule of drug administration [Unknown]

NARRATIVE: CASE EVENT DATE: 201209
